FAERS Safety Report 9177788 (Version 1)
Quarter: 2013Q1

REPORT INFORMATION
  Report Type: Spontaneous
  Country: US (occurrence: None)
  Receive Date: 20130319
  Receipt Date: 20130319
  Transmission Date: 20140127
  Serious: Yes (Hospitalization)
  Sender: FDA-Public Use
  Company Number: CIP-2013-00106

PATIENT
  Age: 65 Year
  Sex: Female

DRUGS (2)
  1. DONEPEZIL [Suspect]
     Indication: DEMENTIA ALZHEIMER^S TYPE
     Route: 048
  2. CLOPIDOGREL (CLOPIDOGREL) [Concomitant]

REACTIONS (6)
  - Mania [None]
  - Memory impairment [None]
  - Executive dysfunction [None]
  - Encephalomalacia [None]
  - Cerebral microangiopathy [None]
  - Cerebral disorder [None]
